FAERS Safety Report 21809164 (Version 1)
Quarter: 2023Q1

REPORT INFORMATION
  Report Type: Report from Study
  Country: EG (occurrence: EG)
  Receive Date: 20230103
  Receipt Date: 20230103
  Transmission Date: 20230418
  Serious: Yes (Other)
  Sender: FDA-Public Use
  Company Number: EG-002147023-NVSC2022EG302248

PATIENT
  Age: 50 Year
  Sex: Male

DRUGS (2)
  1. COSENTYX [Suspect]
     Active Substance: SECUKINUMAB
     Indication: Psoriasis
     Dosage: 300 MG, QW, (2 PREFILLED PENS PER WEEK FOR 1 MONTH AS A LOADING DOSE)
     Route: 058
     Dates: start: 20210301, end: 20210701
  2. COSENTYX [Suspect]
     Active Substance: SECUKINUMAB
     Dosage: 300 MG, QMO, (2 PREFILLED PENS PER MONTH AS A MAINTENANCE DOSE)
     Route: 058
     Dates: start: 20221220

REACTIONS (6)
  - Diabetes mellitus [Unknown]
  - Symptom recurrence [Unknown]
  - Pruritus [Unknown]
  - Memory impairment [Unknown]
  - Inappropriate schedule of product administration [Not Recovered/Not Resolved]
  - Product dose omission issue [Unknown]

NARRATIVE: CASE EVENT DATE: 20210701
